FAERS Safety Report 15061172 (Version 1)
Quarter: 2018Q2

REPORT INFORMATION
  Report Type: Spontaneous
  Country: US (occurrence: US)
  Receive Date: 20180625
  Receipt Date: 20180625
  Transmission Date: 20180711
  Serious: No
  Sender: FDA-Public Use
  Company Number: US-ROCHE-1938573

PATIENT
  Age: 57 Year
  Sex: Female

DRUGS (2)
  1. XELODA [Suspect]
     Active Substance: CAPECITABINE
     Indication: BREAST CANCER
     Dosage: 5 TABLETS
     Route: 048
     Dates: start: 20170418, end: 20170428
  2. XELODA [Suspect]
     Active Substance: CAPECITABINE
     Dosage: 4 TABLETS
     Route: 048
     Dates: start: 20170515

REACTIONS (7)
  - Pain in extremity [Unknown]
  - Abdominal pain [Unknown]
  - Rash [Unknown]
  - Stomatitis [Unknown]
  - Abdominal pain upper [Unknown]
  - Pyrexia [Unknown]
  - Ocular hyperaemia [Unknown]

NARRATIVE: CASE EVENT DATE: 20170428
